FAERS Safety Report 8976592 (Version 1)
Quarter: 2012Q4

REPORT INFORMATION
  Report Type: 
  Country: US (occurrence: US)
  Receive Date: 20121219
  Receipt Date: 20121219
  Transmission Date: 20130627
  Serious: No
  Sender: FDA-Public Use
  Company Number: US-AMGEN-USASP2012061125

PATIENT

DRUGS (1)
  1. PROLIA [Suspect]
     Indication: PROSTATE CANCER
     Dosage: UNK
     Dates: start: 20120921

REACTIONS (2)
  - Skin mass [Not Recovered/Not Resolved]
  - Pruritus [Not Recovered/Not Resolved]
